FAERS Safety Report 5201765-1 (Version None)
Quarter: 2007Q1

REPORT INFORMATION
  Report Type: 
  Country: None (occurrence: None)
  Receive Date: 20070104
  Receipt Date: 20061226
  Transmission Date: 20070707
  Serious: Yes (Death, Hospitalization)
  Sender: FDA-Public Use
  Company Number: A-CH2006-13899

PATIENT
  Age: 32 Year
  Sex: Female

DRUGS (2)
  1. TRACLEER (BOSTEN) TABLET [Suspect]
     Indication: PULMONARY HYPERTENSION
     Dosage: 62.5 MG, BID; ORAL; 125 MG, BID; ORAL
     Route: 048
     Dates: start: 20051212, end: 20060206
  2. TRACLEER (BOSTEN) TABLET [Suspect]
     Indication: PULMONARY HYPERTENSION
     Dosage: 62.5 MG, BID; ORAL; 125 MG, BID; ORAL
     Route: 048
     Dates: start: 20060207, end: 20061215

REACTIONS (4)
  - DIALYSIS [None]
  - HYPOTENSION [None]
  - LOSS OF CONSCIOUSNESS [None]
  - RENAL FAILURE ACUTE [None]
